FAERS Safety Report 10755171 (Version 1)
Quarter: 2015Q1

REPORT INFORMATION
  Report Type: Spontaneous
  Country: US (occurrence: None)
  Receive Date: 20150123
  Receipt Date: 20150123
  Transmission Date: 20150721
  Serious: Yes (Hospitalization)
  Sender: FDA-Public Use
  Company Number: TPA2009A01652

PATIENT
  Age: 53 Year
  Sex: Female
  Weight: 82.5 kg

DRUGS (3)
  1. PREVACID SOLUTAB [Suspect]
     Active Substance: LANSOPRAZOLE
     Indication: GASTROOESOPHAGEAL REFLUX DISEASE
     Route: 048
     Dates: start: 200806, end: 20090626
  2. ASPIRIN (ACETYLSALICULIC ACID) [Concomitant]
  3. PREVACID SOLUTAB [Suspect]
     Active Substance: LANSOPRAZOLE
     Indication: EROSIVE OESOPHAGITIS
     Route: 048
     Dates: start: 200806, end: 20090626

REACTIONS (4)
  - Heart rate increased [None]
  - Blood magnesium decreased [None]
  - Hypertension [None]
  - Weight increased [None]

NARRATIVE: CASE EVENT DATE: 200808
